FAERS Safety Report 8799193 (Version 1)
Quarter: 2012Q4

REPORT INFORMATION
  Report Type: 
  Country: US (occurrence: US)
  Receive Date: 20120920
  Receipt Date: 20120920
  Transmission Date: 20130627
  Serious: No
  Sender: FDA-Public Use
  Company Number: US-ASTRAZENECA-2012SE23113

PATIENT
  Age: 47 Year
  Sex: Male

DRUGS (13)
  1. ZESTRIL [Suspect]
     Route: 048
  2. SYMBICORT [Concomitant]
  3. ALBUTEROL INHALER [Concomitant]
     Dosage: AS NEEDED
  4. METOPROLOL TARTRATE [Concomitant]
  5. PHYTONADIONE [Concomitant]
  6. TRAMADOL [Concomitant]
  7. GABAPENTIN [Concomitant]
  8. LACTULOSE [Concomitant]
  9. RIFAXIMIN [Concomitant]
  10. ALLEGRA [Concomitant]
     Dosage: AS NEEDED FOR ALLERGIES
  11. VITAMIN K [Concomitant]
  12. FERROUS SULFATE [Concomitant]
  13. B-1 [Concomitant]

REACTIONS (2)
  - Throat tightness [Unknown]
  - Drug hypersensitivity [Unknown]
